FAERS Safety Report 4839275-3 (Version None)
Quarter: 2005Q4

REPORT INFORMATION
  Report Type: 
  Country: None (occurrence: None)
  Receive Date: 20051129
  Receipt Date: 20041108
  Transmission Date: 20060501
  Serious: No
  Sender: FDA-Public Use
  Company Number: US-GLAXOSMITHKLINE-A0533077A

PATIENT
  Sex: Female

DRUGS (5)
  1. WELLBUTRIN SR [Suspect]
     Dosage: 200MG TWICE PER DAY
     Route: 048
  2. DEPAKOTE [Concomitant]
  3. LITHIUM [Concomitant]
  4. ZYPREXA [Concomitant]
  5. RISPERDAL [Concomitant]

REACTIONS (1)
  - DRUG INEFFECTIVE [None]
